FAERS Safety Report 4376111-6 (Version None)
Quarter: 2004Q2

REPORT INFORMATION
  Report Type: 
  Country: None (occurrence: None)
  Receive Date: 20040609
  Receipt Date: 20040609
  Transmission Date: 20050107
  Serious: Yes (Hospitalization)
  Sender: FDA-Public Use
  Company Number: None

PATIENT
  Age: 46 Year
  Sex: Male
  Weight: 106.7 kg

DRUGS (11)
  1. INTEGRILIN [Suspect]
     Indication: ANTIPLATELET THERAPY
     Dosage: 2 (9.5ML BOLUSES), 17ML/HR IV
     Route: 042
     Dates: start: 20040528, end: 20040529
  2. HEPARIN [Suspect]
     Dosage: 5225 UNIT BOLUS
     Dates: start: 20040528
  3. MIDAZOLAM HCL [Concomitant]
  4. FENTANYL [Concomitant]
  5. LIDOCAINE [Concomitant]
  6. CEFAZOLIN [Concomitant]
  7. MORPHINE [Concomitant]
  8. NITROGLYCERIN [Concomitant]
  9. ASPIRIN [Concomitant]
  10. CLOPIDOREL [Concomitant]
  11. PEPCID [Concomitant]

REACTIONS (3)
  - HAEMATEMESIS [None]
  - POST PROCEDURAL HAEMATOMA [None]
  - TREMOR [None]
